FAERS Safety Report 16091328 (Version 3)
Quarter: 2020Q3

REPORT INFORMATION
  Report Type: Spontaneous
  Country: US (occurrence: US)
  Receive Date: 20190319
  Receipt Date: 20200907
  Transmission Date: 20201102
  Serious: No
  Sender: FDA-Public Use
  Company Number: US-PFIZER INC-2019118637

PATIENT
  Age: 63 Year
  Sex: Female

DRUGS (6)
  1. CELECOXIB. [Suspect]
     Active Substance: CELECOXIB
     Indication: ARTHRITIS
     Dosage: 200 MG, 1X/DAY
  2. OLMESARTAN HYDROCHLOROTHIAZIDE ROWEX [Concomitant]
     Indication: BLOOD PRESSURE ABNORMAL
     Dosage: UNK
  3. CALCIUM + D3 [CALCIUM;COLECALCIFEROL] [Concomitant]
     Dosage: UNK (600MG+D3)
  4. SYNTHROID [Concomitant]
     Active Substance: LEVOTHYROXINE SODIUM
     Dosage: 150 MG, 1X/DAY
  5. PRAVASTATIN. [Concomitant]
     Active Substance: PRAVASTATIN
     Dosage: 80 MG, 1X/DAY
  6. VIT E [TOCOPHEROL] [Concomitant]
     Indication: LIVER DISORDER
     Dosage: 400 IU, UNK

REACTIONS (1)
  - Headache [Recovered/Resolved]
